FAERS Safety Report 14367880 (Version 12)
Quarter: 2018Q2

REPORT INFORMATION
  Report Type: Report from Study
  Country: CA (occurrence: CA)
  Receive Date: 20180109
  Receipt Date: 20180628
  Transmission Date: 20180711
  Serious: Yes (Hospitalization, Other)
  Sender: FDA-Public Use
  Company Number: PHHY2015CA111727

PATIENT
  Age: 27 Year
  Sex: Female

DRUGS (18)
  1. SIGNIFOR LAR [Suspect]
     Active Substance: PASIREOTIDE
     Dosage: 60 MG, QMO
     Route: 030
     Dates: start: 2012
  2. SIGNIFOR LAR [Suspect]
     Active Substance: PASIREOTIDE
     Dosage: 60 MG, QMO
     Route: 030
     Dates: end: 20170605
  3. SANDOSTATIN [Suspect]
     Active Substance: OCTREOTIDE ACETATE
     Indication: ACROMEGALY
     Dosage: UNK, TID
     Route: 058
     Dates: start: 20110509, end: 201105
  4. JANUVIA [Concomitant]
     Active Substance: SITAGLIPTIN PHOSPHATE
     Indication: PRODUCT USED FOR UNKNOWN INDICATION
     Route: 065
  5. DOSTINEX [Concomitant]
     Active Substance: CABERGOLINE
     Indication: PRODUCT USED FOR UNKNOWN INDICATION
     Dosage: UNK
     Route: 048
     Dates: start: 2016
  6. SIGNIFOR LAR [Suspect]
     Active Substance: PASIREOTIDE
     Dosage: 40 MG, QMO (EVERY 4 WEEKS)
     Route: 030
     Dates: start: 20120101
  7. DIABETA [Concomitant]
     Active Substance: GLYBURIDE
     Indication: PRODUCT USED FOR UNKNOWN INDICATION
     Route: 065
  8. SIGNIFOR LAR [Suspect]
     Active Substance: PASIREOTIDE
     Indication: ACROMEGALY
     Dosage: 30 MG, QMO (EVERY 4 WEEKS)
     Route: 030
     Dates: start: 20110523
  9. SIGNIFOR LAR [Suspect]
     Active Substance: PASIREOTIDE
     Dosage: 60 MG, QMO (EVERY 4 WEEKS)
     Route: 030
     Dates: start: 20130101, end: 20170508
  10. SIGNIFOR LAR [Suspect]
     Active Substance: PASIREOTIDE
     Dosage: 40 MG, QMO
     Route: 030
  11. SANDOSTATIN LAR DEPOT [Suspect]
     Active Substance: OCTREOTIDE ACETATE
     Dosage: 20 MG, QMO
     Route: 030
  12. SANDOSTATIN LAR DEPOT [Suspect]
     Active Substance: OCTREOTIDE ACETATE
     Dosage: 30 MG, QMO
     Route: 030
     Dates: start: 20171024
  13. CABERGOLINE. [Suspect]
     Active Substance: CABERGOLINE
     Indication: ACROMEGALY
     Route: 065
  14. INSULIN [Concomitant]
     Active Substance: INSULIN NOS
     Indication: PRODUCT USED FOR UNKNOWN INDICATION
     Route: 058
  15. SANDOSTATIN LAR DEPOT [Suspect]
     Active Substance: OCTREOTIDE ACETATE
     Indication: ACROMEGALY
     Dosage: 30 MG, QMO (EVERY 4 WEEKS)
     Route: 030
     Dates: start: 20110523
  16. METFORMIN [Suspect]
     Active Substance: METFORMIN HYDROCHLORIDE
     Indication: PRODUCT USED FOR UNKNOWN INDICATION
     Route: 065
  17. SYNTHROID [Concomitant]
     Active Substance: LEVOTHYROXINE SODIUM
     Indication: PRODUCT USED FOR UNKNOWN INDICATION
     Route: 065
  18. SANDOSTATIN LAR DEPOT [Suspect]
     Active Substance: OCTREOTIDE ACETATE
     Dosage: 30 MG, QMO (EVERY 4 WEEKS)
     Route: 030
     Dates: start: 20111031

REACTIONS (16)
  - Headache [Unknown]
  - Groin abscess [Unknown]
  - Infectious mononucleosis [Unknown]
  - Body temperature decreased [Unknown]
  - Facial pain [Unknown]
  - Sinusitis [Unknown]
  - Blood pressure systolic increased [Unknown]
  - Blood pressure increased [Unknown]
  - Cortisol decreased [Unknown]
  - Heart rate increased [Unknown]
  - Drug resistance [Unknown]
  - Heart rate decreased [Unknown]
  - Abdominal pain [Recovering/Resolving]
  - Nasal congestion [Unknown]
  - Laryngitis bacterial [Unknown]
  - Drug ineffective [Unknown]

NARRATIVE: CASE EVENT DATE: 20151225
